FAERS Safety Report 5092014-6 (Version None)
Quarter: 2006Q3

REPORT INFORMATION
  Report Type: 
  Country: None (occurrence: None)
  Receive Date: 20060825
  Receipt Date: 20060816
  Transmission Date: 20061208
  Serious: Yes (Hospitalization)
  Sender: FDA-Public Use
  Company Number: 2006100402

PATIENT
  Age: 51 Year
  Sex: Female

DRUGS (2)
  1. SULFASALAZINE [Suspect]
     Indication: DRUG USE FOR UNKNOWN INDICATION
     Dosage: 2 GRAM (500 MG, EVERY DAY) ORAL
     Route: 048
     Dates: start: 20060623, end: 20060723
  2. NAPROSYN [Suspect]
     Indication: DRUG USE FOR UNKNOWN INDICATION
     Dosage: ORAL
     Route: 048
     Dates: start: 20060605, end: 20060723

REACTIONS (4)
  - CYTOLYTIC HEPATITIS [None]
  - DRUG RASH WITH EOSINOPHILIA AND SYSTEMIC SYMPTOMS [None]
  - HYPERSENSITIVITY [None]
  - TOXIC SKIN ERUPTION [None]
